FAERS Safety Report 8398998-2 (Version None)
Quarter: 2012Q2

REPORT INFORMATION
  Report Type: 
  Country: None (occurrence: None)
  Receive Date: 20120531
  Receipt Date: 20120518
  Transmission Date: 20120825
  Serious: Yes (Other)
  Sender: FDA-Public Use
  Company Number: ES-JNJFOC-20120516942

PATIENT

DRUGS (2)
  1. REMICADE [Suspect]
     Indication: UVEITIS
     Dosage: DOSING INTERVAL : 4 TO 8 WEEKS
     Route: 042
  2. ADALIMUMAB [Suspect]
     Indication: UVEITIS
     Dosage: DOSING INTERVAL : 4 TO 8 WEEKS
     Route: 058

REACTIONS (1)
  - DISSEMINATED TUBERCULOSIS [None]
